FAERS Safety Report 7418216-9 (Version None)
Quarter: 2011Q2

REPORT INFORMATION
  Report Type: 
  Country: None (occurrence: None)
  Receive Date: 20110408
  Receipt Date: 20110329
  Transmission Date: 20111010
  Serious: Yes (Hospitalization)
  Sender: FDA-Public Use
  Company Number: 8043061

PATIENT
  Age: 28 Year
  Sex: Female

DRUGS (8)
  1. FOLIC ACID [Concomitant]
  2. FOLIC ACID W/IRON/VITAMIN B12 [Concomitant]
  3. CALCIUM [Concomitant]
  4. SYNTHROID [Concomitant]
  5. PRENATAL VITAMINS [Concomitant]
  6. KEPPRA [Suspect]
     Indication: EPILEPSY
     Dosage: 2000 MG, DAILY ORAL
     Route: 048
     Dates: start: 20090101, end: 20090211
  7. KEPPRA [Suspect]
     Indication: EPILEPSY
     Dosage: 1250 MG, DAILY ORAL, 2500 MG, DAILY ORAL
     Route: 048
     Dates: start: 20070901, end: 20090101
  8. KEPPRA [Suspect]
     Indication: EPILEPSY
     Dosage: 1250 MG, DAILY ORAL, 2500 MG, DAILY ORAL
     Route: 048
     Dates: start: 20090211

REACTIONS (6)
  - DRUG EXPOSURE DURING PREGNANCY [None]
  - PREGNANCY [None]
  - SYNCOPE [None]
  - FATIGUE [None]
  - VITAMIN B12 DECREASED [None]
  - HAEMOGLOBIN DECREASED [None]
